FAERS Safety Report 17656236 (Version 1)
Quarter: 2020Q2

REPORT INFORMATION
  Report Type: Spontaneous
  Country: US (occurrence: US)
  Receive Date: 20200410
  Receipt Date: 20200410
  Transmission Date: 20200713
  Serious: No
  Sender: FDA-Public Use
  Company Number: US-PERRIGO-19US013000

PATIENT
  Age: 66 Year
  Sex: Female
  Weight: 87.08 kg

DRUGS (2)
  1. ACETAMINOPHEN. [Suspect]
     Active Substance: ACETAMINOPHEN
     Indication: ARTHRALGIA
     Dosage: 1300 MG, BID, PRN
     Dates: start: 201909, end: 20191020
  2. DRUGS FOR OBSTRUCTIVE AIRWAY DISEASES [Concomitant]
     Indication: ASTHMA
     Dosage: UNK
     Route: 055

REACTIONS (2)
  - Incorrect product administration duration [Recovered/Resolved]
  - Drug ineffective [Unknown]

NARRATIVE: CASE EVENT DATE: 201909
